FAERS Safety Report 8247274-7 (Version None)
Quarter: 2012Q1

REPORT INFORMATION
  Report Type: 
  Country: None (occurrence: None)
  Receive Date: 20120330
  Receipt Date: 20120326
  Transmission Date: 20120608
  Serious: Yes (Other)
  Sender: FDA-Public Use
  Company Number: US-BAYER-2012-029726

PATIENT
  Age: 60 Year
  Sex: Female

DRUGS (5)
  1. VIIBRYD [Suspect]
     Indication: DEPRESSION
     Dosage: 10 MG, QD
     Route: 048
     Dates: start: 20120229, end: 20120306
  2. VIIBRYD [Suspect]
     Dosage: 20 MG, QD
     Route: 048
     Dates: start: 20120307
  3. AVELOX [Suspect]
     Indication: BRONCHITIS
     Dosage: UNK
     Dates: start: 20120308
  4. ZIAC [Concomitant]
     Indication: HYPERTENSION
     Dosage: UNK
  5. PROTONIX [Concomitant]
     Indication: GASTROOESOPHAGEAL REFLUX DISEASE
     Dosage: UNK

REACTIONS (4)
  - PANIC ATTACK [None]
  - NAUSEA [None]
  - NERVOUSNESS [None]
  - DIARRHOEA [None]
